FAERS Safety Report 24677215 (Version 3)
Quarter: 2025Q2

REPORT INFORMATION
  Report Type: Spontaneous
  Country: PT (occurrence: PT)
  Receive Date: 20241129
  Receipt Date: 20250526
  Transmission Date: 20250717
  Serious: Yes (Death, Other)
  Sender: NOVITIUM PHARMA
  Company Number: PT-NOVITIUMPHARMA-2024PTNVP02647

PATIENT
  Age: 60 Year
  Sex: Male

DRUGS (11)
  1. DEXAMETHASONE [Suspect]
     Active Substance: DEXAMETHASONE
     Indication: Angiocentric lymphoma
  2. PREDNISONE [Suspect]
     Active Substance: PREDNISONE
     Indication: Ankylosing spondylitis
  3. INFLIXIMAB [Concomitant]
     Active Substance: INFLIXIMAB
     Indication: Ankylosing spondylitis
     Dates: start: 2013
  4. CYCLOPHOSPHAMIDE [Concomitant]
     Active Substance: CYCLOPHOSPHAMIDE
     Indication: Angiocentric lymphoma
  5. DOXORUBICIN [Concomitant]
     Active Substance: DOXORUBICIN
     Indication: Angiocentric lymphoma
  6. VINCRISTINE [Concomitant]
     Active Substance: VINCRISTINE
     Indication: Angiocentric lymphoma
  7. PREDNISOLONE [Concomitant]
     Active Substance: PREDNISOLONE
     Indication: Angiocentric lymphoma
  8. RITUXIMAB [Concomitant]
     Active Substance: RITUXIMAB
     Indication: Angiocentric lymphoma
  9. IFOSFAMIDE [Concomitant]
     Active Substance: IFOSFAMIDE
     Indication: Angiocentric lymphoma
  10. CARBOPLATIN [Concomitant]
     Active Substance: CARBOPLATIN
     Indication: Angiocentric lymphoma
  11. ETOPOSIDE [Concomitant]
     Active Substance: ETOPOSIDE
     Indication: Angiocentric lymphoma

REACTIONS (5)
  - Angiocentric lymphoma [Fatal]
  - Haematotoxicity [Unknown]
  - Gastrointestinal toxicity [Unknown]
  - Infection [Unknown]
  - Drug ineffective [Unknown]
